FAERS Safety Report 8857708 (Version 6)
Quarter: 2012Q4

REPORT INFORMATION
  Report Type: 
  Country: US (occurrence: US)
  Receive Date: 20121024
  Receipt Date: 20121227
  Transmission Date: 20130627
  Serious: Yes (Hospitalization, Disabling, Other)
  Sender: FDA-Public Use
  Company Number: US-009507513-2012SP013041

PATIENT

DRUGS (2)
  1. NUVARING [Suspect]
     Indication: CONTRACEPTION
     Dosage: UNK
     Route: 067
     Dates: start: 20040205, end: 200910
  2. WELLBUTRIN XL [Concomitant]
     Indication: DEPRESSION
     Dosage: UNK, qd

REACTIONS (21)
  - Cervix carcinoma [Unknown]
  - Pulmonary embolism [Recovering/Resolving]
  - Hand fracture [Unknown]
  - Headache [Unknown]
  - Seasonal allergy [Recovered/Resolved]
  - Dysmenorrhoea [Recovered/Resolved]
  - Dyspepsia [Recovered/Resolved]
  - Chest pain [Unknown]
  - Gastrooesophageal reflux disease [Unknown]
  - Vulvovaginal swelling [Unknown]
  - Sinus disorder [Unknown]
  - Infusion site swelling [Unknown]
  - Hyperaesthesia [Unknown]
  - Ovarian cyst [Unknown]
  - Brachytherapy [Unknown]
  - Cystoscopy [Unknown]
  - Proctoscopy [Unknown]
  - Adverse drug reaction [Unknown]
  - Discomfort [Unknown]
  - Haemorrhoids [Unknown]
  - Gastrointestinal motility disorder [Unknown]
